FAERS Safety Report 4043314 (Version 3)
Quarter: 2013Q4

REPORT INFORMATION
  Report Type: Spontaneous
  Country: FR (occurrence: FR)
  Receive Date: 20031203
  Receipt Date: 20131017
  Transmission Date: 20140711
  Serious: Yes (Hospitalization)
  Sender: FDA-Public Use
  Company Number: FR-JNJFOC-20031104596

PATIENT
  Age: 56 Year
  Sex: Female

DRUGS (2)
  1. GYNO-PEVARYL [Suspect]
     Indication: PRODUCT USED FOR UNKNOWN INDICATION
     Route: 067
     Dates: end: 20030606
  2. COUMADINE [Interacting]
     Indication: PRODUCT USED FOR UNKNOWN INDICATION
     Route: 065
     Dates: end: 20030606

REACTIONS (4)
  - Haematoma [Recovered/Resolved]
  - Cerebellar syndrome [Not Recovered/Not Resolved]
  - Drug interaction [Unknown]
  - International normalised ratio increased [Unknown]
